FAERS Safety Report 4570926-7 (Version None)
Quarter: 2005Q1

REPORT INFORMATION
  Report Type: 
  Country: None (occurrence: None)
  Receive Date: 20050204
  Receipt Date: 20041122
  Transmission Date: 20050727
  Serious: Yes (Hospitalization)
  Sender: FDA-Public Use
  Company Number: US-MERCK-0411USA03522

PATIENT
  Age: 52 Year
  Sex: Female
  Weight: 91 kg

DRUGS (4)
  1. EMEND [Suspect]
     Indication: PROPHYLAXIS OF NAUSEA AND VOMITING
     Route: 048
     Dates: start: 20040405
  2. EMEND [Suspect]
     Route: 048
     Dates: end: 20041101
  3. [THERAPY UNSPECIFIED] [Concomitant]
     Route: 065
  4. ANTINEOPLASTIC (UNSPECIFIED) [Concomitant]
     Route: 065

REACTIONS (1)
  - SMALL INTESTINAL OBSTRUCTION [None]
